FAERS Safety Report 24658480 (Version 1)
Quarter: 2024Q4

REPORT INFORMATION
  Report Type: Spontaneous
  Country: NZ (occurrence: NZ)
  Receive Date: 20241125
  Receipt Date: 20241125
  Transmission Date: 20250115
  Serious: Yes (Life-Threatening)
  Sender: NOVARTIS
  Company Number: NZ-002147023-NVSC2024NZ223953

PATIENT

DRUGS (5)
  1. CYCLOSPORINE [Suspect]
     Active Substance: CYCLOSPORINE
     Indication: Product used for unknown indication
     Dosage: UNK
     Route: 065
  2. METHOTREXATE [Suspect]
     Active Substance: METHOTREXATE
     Indication: Product used for unknown indication
     Dosage: UNK
     Route: 065
  3. MYCOPHENOLIC ACID [Suspect]
     Active Substance: MYCOPHENOLIC ACID
     Indication: Product used for unknown indication
     Route: 065
  4. MABTHERA [Suspect]
     Active Substance: RITUXIMAB
     Indication: Product used for unknown indication
     Dosage: UNK
     Route: 065
  5. AZATHIOPRINE [Suspect]
     Active Substance: AZATHIOPRINE
     Indication: Product used for unknown indication
     Dosage: UNK
     Route: 065

REACTIONS (12)
  - Diabetes mellitus [Unknown]
  - Urinary tract infection [Unknown]
  - Infection [Unknown]
  - Cataract [Unknown]
  - Osteoporosis [Unknown]
  - Pneumonia [Unknown]
  - COVID-19 [Unknown]
  - Mental disorder [Unknown]
  - Cushing^s syndrome [Unknown]
  - Hepatitis [Unknown]
  - Osteopenia [Unknown]
  - Blood glucose abnormal [Unknown]
